FAERS Safety Report 13571343 (Version 1)
Quarter: 2017Q2

REPORT INFORMATION
  Report Type: Spontaneous
  Country: US (occurrence: US)
  Receive Date: 20170522
  Receipt Date: 20170522
  Transmission Date: 20170830
  Serious: Yes (Other)
  Sender: FDA-Public Use
  Company Number: None

PATIENT
  Age: 73 Year
  Sex: Female

DRUGS (1)
  1. REVLIMID [Suspect]
     Active Substance: LENALIDOMIDE
     Indication: LYMPHOMA
     Route: 048
     Dates: start: 20170428

REACTIONS (5)
  - Tenderness [None]
  - Erythema [None]
  - Rash [None]
  - Deep vein thrombosis [None]
  - Cellulitis [None]

NARRATIVE: CASE EVENT DATE: 20170520
